FAERS Safety Report 23149691 (Version 1)
Quarter: 2023Q4

REPORT INFORMATION
  Report Type: Spontaneous
  Country: US (occurrence: None)
  Receive Date: 20231104
  Receipt Date: 20231104
  Transmission Date: 20240110
  Serious: Yes (Hospitalization, Disabling)
  Sender: FDA-Public Use
  Company Number: None

PATIENT
  Age: 23 Year
  Sex: Female
  Weight: 43.2 kg

DRUGS (9)
  1. CIPROFLOXACIN [Suspect]
     Active Substance: CIPROFLOXACIN
     Indication: Diarrhoea
     Dates: start: 20090731, end: 20090804
  2. CIPROFLOXACIN [Suspect]
     Active Substance: CIPROFLOXACIN
     Indication: Vomiting
  3. LEVOTHYROXINE [Concomitant]
     Active Substance: LEVOTHYROXINE
  4. CLONAZEPAM [Concomitant]
     Active Substance: CLONAZEPAM
  5. TUMS [Concomitant]
     Active Substance: CALCIUM CARBONATE
  6. PEPCID [Concomitant]
     Active Substance: FAMOTIDINE
  7. VITAMINS [Concomitant]
     Active Substance: VITAMINS
  8. VITAMIN B12 [Concomitant]
     Active Substance: CYANOCOBALAMIN
  9. PROLINE [Concomitant]
     Active Substance: PROLINE

REACTIONS (13)
  - Tendon pain [None]
  - Joint stiffness [None]
  - Gait disturbance [None]
  - Anxiety [None]
  - Panic attack [None]
  - Food intolerance [None]
  - Arthropathy [None]
  - Fatigue [None]
  - Impaired work ability [None]
  - Meniscus injury [None]
  - Intervertebral disc protrusion [None]
  - Neck injury [None]
  - Product complaint [None]

NARRATIVE: CASE EVENT DATE: 20090731
